FAERS Safety Report 4338573-X (Version None)
Quarter: 2004Q2

REPORT INFORMATION
  Report Type: 
  Country: None (occurrence: None)
  Receive Date: 20040409
  Receipt Date: 20040402
  Transmission Date: 20050107
  Serious: Yes (Other)
  Sender: FDA-Public Use
  Company Number: DE-JNJFOC-20040400861

PATIENT
  Age: 73 Year
  Sex: Female
  Weight: 60 kg

DRUGS (3)
  1. REMINYL [Suspect]
     Indication: DEMENTIA ALZHEIMER'S TYPE
     Dosage: 2 ML, 2 IN 1 DAY, ORAL
     Route: 048
  2. ZOLOFT [Suspect]
     Indication: DEPRESSION
     Dosage: 50 MG, 1 IN 1 DAY, ORAL
     Route: 048
  3. LACTOLOSE (LACTULOSE) [Concomitant]

REACTIONS (2)
  - BLOOD PRESSURE DECREASED [None]
  - LEUKOPENIA [None]
